FAERS Safety Report 5912310-7 (Version None)
Quarter: 2008Q4

REPORT INFORMATION
  Report Type: 
  Country: None (occurrence: None)
  Receive Date: 20081008
  Receipt Date: 20080926
  Transmission Date: 20090506
  Serious: Yes (Hospitalization)
  Sender: FDA-Public Use
  Company Number: GB-ROCHE-588718

PATIENT
  Sex: Female

DRUGS (3)
  1. ORLISTAT [Suspect]
     Indication: OBESITY
     Route: 048
     Dates: start: 20080221
  2. METFORMIN HCL [Concomitant]
     Route: 048
  3. INSULIN [Concomitant]
     Route: 058

REACTIONS (2)
  - BLOOD IRON DECREASED [None]
  - CELLULITIS [None]
